FAERS Safety Report 11004139 (Version 1)
Quarter: 2015Q2

REPORT INFORMATION
  Report Type: Spontaneous
  Country: CH (occurrence: None)
  Receive Date: 20150407
  Receipt Date: 20150407
  Transmission Date: 20150821
  Serious: Yes (Hospitalization)
  Sender: FDA-Public Use
  Company Number: 20150198

PATIENT
  Age: 30 Year
  Sex: Female
  Weight: 50 kg

DRUGS (2)
  1. FERINJECT [Suspect]
     Active Substance: FERRIC CARBOXYMALTOSE
     Indication: IRON DEFICIENCY ANAEMIA
     Route: 042
     Dates: start: 20140827, end: 20140827
  2. FERINJECT [Suspect]
     Active Substance: FERRIC CARBOXYMALTOSE
     Indication: CROHN^S DISEASE
     Route: 042
     Dates: start: 20140827, end: 20140827

REACTIONS (7)
  - Urticaria [None]
  - Hypotension [None]
  - Headache [None]
  - Pruritus [None]
  - Angioedema [None]
  - Flushing [None]
  - Myalgia [None]

NARRATIVE: CASE EVENT DATE: 20140827
